FAERS Safety Report 10070690 (Version 1)
Quarter: 2014Q2

REPORT INFORMATION
  Report Type: Spontaneous
  Country: US (occurrence: US)
  Receive Date: 20140410
  Receipt Date: 20140410
  Transmission Date: 20141212
  Serious: No
  Sender: FDA-Public Use
  Company Number: US-009507513-1404USA004793

PATIENT
  Age: 96 Year
  Sex: Female

DRUGS (5)
  1. NASONEX [Suspect]
     Indication: RHINORRHOEA
     Dosage: 1 SPAY IN EACH NOSTRIL AT DINNER AND AT BED TIME
     Route: 045
     Dates: start: 20140406
  2. NASONEX [Suspect]
     Indication: RESPIRATORY TRACT CONGESTION
  3. NASONEX [Suspect]
     Indication: COUGH
  4. TIMOPTIC [Concomitant]
  5. SYMBICORT [Concomitant]

REACTIONS (1)
  - Drug ineffective [Not Recovered/Not Resolved]
